FAERS Safety Report 10575052 (Version 1)
Quarter: 2014Q4

REPORT INFORMATION
  Report Type: Spontaneous
  Country: DE (occurrence: DE)
  Receive Date: 20141111
  Receipt Date: 20141111
  Transmission Date: 20150529
  Serious: Yes (Congenital Anomaly, Other)
  Sender: FDA-Public Use
  Company Number: DE-AUROBINDO-AUR-APL-2014-11673

PATIENT
  Age: 2 Day
  Sex: Male
  Weight: 3.85 kg

DRUGS (2)
  1. L THYROXIN [Concomitant]
     Active Substance: LEVOTHYROXINE SODIUM
     Indication: HYPOTHYROIDISM
     Dosage: 75 ?G, ONCE A DAY
     Dates: start: 20120731, end: 20130506
  2. MIRTAZAPINE 30MG [Suspect]
     Active Substance: MIRTAZAPINE
     Indication: DEPRESSION
     Dosage: 30 MG, ONCE A DAY
     Route: 064
     Dates: start: 20120731, end: 20130506

REACTIONS (4)
  - Congenital skin dimples [Unknown]
  - Foetal exposure during pregnancy [Unknown]
  - Rash [Recovered/Resolved]
  - Haemangioma [Unknown]
